FAERS Safety Report 7646685-8 (Version None)
Quarter: 2011Q3

REPORT INFORMATION
  Report Type: 
  Country: None (occurrence: None)
  Receive Date: 20110801
  Receipt Date: 20110721
  Transmission Date: 20111222
  Serious: Yes (Other)
  Sender: FDA-Public Use
  Company Number: FR-JNJFOC-20110605274

PATIENT
  Age: 32 Year
  Sex: Female
  Weight: 65 kg

DRUGS (12)
  1. FIVASA [Concomitant]
     Dates: start: 20090101
  2. REMICADE [Suspect]
     Route: 042
     Dates: start: 20100818, end: 20100818
  3. REMICADE [Suspect]
     Route: 042
     Dates: start: 20100526
  4. REMICADE [Suspect]
     Dosage: MORE THAN 20 INFUSIONS
     Route: 042
     Dates: start: 20050101, end: 20070101
  5. ORAL CONTRACEPTIVE [Concomitant]
  6. REMICADE [Suspect]
     Route: 042
     Dates: start: 20091118
  7. CORTICOSTEROIDS [Concomitant]
     Indication: CROHN'S DISEASE
  8. REMICADE [Suspect]
     Route: 042
     Dates: start: 20100407
  9. REMICADE [Suspect]
     Route: 042
     Dates: start: 20100224
  10. REMICADE [Suspect]
     Indication: CROHN'S DISEASE
     Route: 042
     Dates: start: 20100707
  11. REMICADE [Suspect]
     Route: 042
     Dates: start: 20091001
  12. PREDNISOLONE [Concomitant]
     Dates: start: 20090101

REACTIONS (4)
  - MATERNAL EXPOSURE BEFORE PREGNANCY [None]
  - INFECTIOUS PERITONITIS [None]
  - LARGE INTESTINAL ULCER [None]
  - LARGE INTESTINE PERFORATION [None]
